FAERS Safety Report 8285683 (Version 2)
Quarter: 2013Q4

REPORT INFORMATION
  Report Type: Spontaneous
  Country: US (occurrence: None)
  Receive Date: 20111206
  Receipt Date: 20131101
  Transmission Date: 20140711
  Serious: Yes (Hospitalization)
  Sender: FDA-Public Use
  Company Number: AUR-APL-2011-05983

PATIENT
  Age: 3 Year
  Sex: Male

DRUGS (1)
  1. FLUOXETINE [Suspect]
     Indication: PRODUCT USED FOR UNKNOWN INDICATION
     Dosage: (12 DOSAGE FORMS),ORAL
     Route: 048

REACTIONS (15)
  - Inappropriate antidiuretic hormone secretion [None]
  - Accidental exposure to product by child [None]
  - Tachycardia [None]
  - Hallucination [None]
  - Hyperhidrosis [None]
  - Aphasia [None]
  - Muscle rigidity [None]
  - Hypertension [None]
  - Vomiting [None]
  - Tremor [None]
  - Convulsion [None]
  - Haemodynamic instability [None]
  - Brain oedema [None]
  - Mydriasis [None]
  - Muscle rigidity [None]
